FAERS Safety Report 4332896-6 (Version None)
Quarter: 2004Q1

REPORT INFORMATION
  Report Type: 
  Country: None (occurrence: None)
  Receive Date: 20040330
  Receipt Date: 20040319
  Transmission Date: 20041129
  Serious: No
  Sender: FDA-Public Use
  Company Number: 2004UW01385

PATIENT
  Age: 69 Year
  Sex: Female
  Weight: 83.0083 kg

DRUGS (5)
  1. IRESSA [Suspect]
     Indication: NON-SMALL CELL LUNG CANCER
     Dosage: 250 MG DAILY PO
     Route: 048
     Dates: start: 20031016
  2. ALBUTEROL [Concomitant]
  3. ATROVENT [Concomitant]
  4. IMODIUM [Concomitant]
  5. PHENERGAN [Concomitant]

REACTIONS (3)
  - BODY TINEA [None]
  - CANDIDIASIS [None]
  - NAUSEA [None]
